FAERS Safety Report 21462922 (Version 5)
Quarter: 2022Q4

REPORT INFORMATION
  Report Type: Spontaneous
  Country: US (occurrence: US)
  Receive Date: 20221017
  Receipt Date: 20221207
  Transmission Date: 20230112
  Serious: No
  Sender: FDA-Public Use
  Company Number: US-UNITED THERAPEUTICS-UNT-2022-024133

PATIENT
  Sex: Female
  Weight: 81.179 kg

DRUGS (11)
  1. TYVASO DPI [Suspect]
     Active Substance: TREPROSTINIL
     Indication: Pulmonary arterial hypertension
     Dosage: 16 ?G, QID
     Dates: start: 20221008, end: 2022
  2. TYVASO DPI [Suspect]
     Active Substance: TREPROSTINIL
     Dosage: 32 ?G, QID
     Dates: start: 202210
  3. TYVASO DPI [Suspect]
     Active Substance: TREPROSTINIL
     Dosage: 48 ?G, QID
     Dates: start: 2022, end: 20221105
  4. TYVASO DPI [Suspect]
     Active Substance: TREPROSTINIL
     Indication: Pulmonary arterial hypertension
     Dosage: UNK
  5. TYVASO DPI [Suspect]
     Active Substance: TREPROSTINIL
     Indication: Pulmonary arterial hypertension
     Dosage: UNK
  6. TYVASO DPI [Suspect]
     Active Substance: TREPROSTINIL
     Indication: Pulmonary arterial hypertension
     Dosage: UNK
  7. INSULIN NOS [Suspect]
     Active Substance: INSULIN NOS
     Indication: Product used for unknown indication
     Dosage: UNK
     Route: 065
  8. UPTRAVI [Suspect]
     Active Substance: SELEXIPAG
     Indication: Pulmonary arterial hypertension
     Dosage: 400 ?G, BID (1 TIME EVERY 0.5 DAYS)
     Route: 048
     Dates: end: 2022
  9. UPTRAVI [Suspect]
     Active Substance: SELEXIPAG
     Dosage: 400 ?G, BID (1 TIME EVERY 0.5 DAYS)
     Route: 048
     Dates: start: 20221106
  10. SILDENAFIL CITRATE [Concomitant]
     Active Substance: SILDENAFIL CITRATE
     Indication: Product used for unknown indication
     Dosage: UNK
     Route: 065
  11. WARFARIN SODIUM [Concomitant]
     Active Substance: WARFARIN SODIUM
     Indication: Product used for unknown indication
     Dosage: UNK
     Route: 065

REACTIONS (16)
  - Cough [Recovered/Resolved]
  - Feeling abnormal [Unknown]
  - Malaise [Unknown]
  - Blood glucose abnormal [Unknown]
  - Blood pressure abnormal [Unknown]
  - Asthenia [Unknown]
  - Headache [Recovered/Resolved]
  - Diarrhoea [Unknown]
  - Pain in jaw [Unknown]
  - Pain [Unknown]
  - Flushing [Recovered/Resolved]
  - Myalgia [Unknown]
  - Influenza like illness [Unknown]
  - Patient dissatisfaction with treatment [Unknown]
  - Product dose omission issue [Recovered/Resolved]
  - Wrong technique in product usage process [Unknown]

NARRATIVE: CASE EVENT DATE: 20220101
